FAERS Safety Report 20575546 (Version 1)
Quarter: 2022Q1

REPORT INFORMATION
  Report Type: Report from Study
  Country: CA (occurrence: CA)
  Receive Date: 20220310
  Receipt Date: 20220310
  Transmission Date: 20220423
  Serious: Yes (Hospitalization)
  Sender: FDA-Public Use
  Company Number: CA-ABBVIE-22K-028-4307569-00

PATIENT
  Sex: Male

DRUGS (2)
  1. HUMIRA [Suspect]
     Active Substance: ADALIMUMAB
     Indication: Psoriasis
     Route: 058
     Dates: start: 20180831
  2. HUMIRA [Suspect]
     Active Substance: ADALIMUMAB
     Indication: Psoriatic arthropathy

REACTIONS (7)
  - Aphasia [Unknown]
  - Precancerous cells present [Unknown]
  - Choking sensation [Unknown]
  - Pulmonary mass [Unknown]
  - Aphasia [Recovered/Resolved]
  - Cough [Unknown]
  - Sensory disturbance [Unknown]
